FAERS Safety Report 19263173 (Version 1)
Quarter: 2021Q2

REPORT INFORMATION
  Report Type: Spontaneous
  Country: AU (occurrence: AU)
  Receive Date: 20210517
  Receipt Date: 20210517
  Transmission Date: 20210717
  Serious: No
  Sender: FDA-Public Use
  Company Number: AU-ALKEM LABORATORIES LIMITED-AU-ALKEM-2021-01915

PATIENT
  Age: 40 Year
  Sex: Female

DRUGS (7)
  1. HYDROMORPHONE [Suspect]
     Active Substance: HYDROMORPHONE
     Dosage: 675 MILLIGRAM, QD
     Route: 065
  2. METHADONE HYDROCHLORIDE. [Suspect]
     Active Substance: METHADONE HYDROCHLORIDE
     Indication: ANALGESIC THERAPY
     Dosage: 60 MILLIGRAM, QD
     Route: 065
  3. KETAMINE [Suspect]
     Active Substance: KETAMINE
     Indication: ANALGESIC THERAPY
     Dosage: UNK
     Route: 065
  4. PARACETAMOL [Suspect]
     Active Substance: ACETAMINOPHEN
     Indication: ANALGESIC THERAPY
     Dosage: UNK
     Route: 048
  5. KETORALAK [Suspect]
     Active Substance: KETOROLAC TROMETHAMINE
     Indication: INFLAMMATORY PAIN
     Dosage: 10 MILLIGRAM, QD
     Route: 065
  6. PREGABALIN. [Suspect]
     Active Substance: PREGABALIN
     Indication: ANALGESIC THERAPY
     Dosage: 225 MILLIGRAM, QD
     Route: 065
  7. HYDROMORPHONE [Suspect]
     Active Substance: HYDROMORPHONE
     Indication: ANALGESIC THERAPY
     Dosage: 120 MILLIGRAM, QD
     Route: 065

REACTIONS (3)
  - Hyperaesthesia [Unknown]
  - Neuralgia [Unknown]
  - Pain [Unknown]
